FAERS Safety Report 5147259-3 (Version None)
Quarter: 2006Q4

REPORT INFORMATION
  Report Type: 
  Country: None (occurrence: None)
  Receive Date: 20061103
  Receipt Date: 20061023
  Transmission Date: 20070319
  Serious: Yes (Hospitalization)
  Sender: FDA-Public Use
  Company Number: 231102

PATIENT
  Age: 59 Year
  Sex: Male
  Weight: 62.6 kg

DRUGS (9)
  1. AVASTIN [Suspect]
     Indication: OESOPHAGEAL ADENOCARCINOMA
     Dosage: 336 MG, Q2W, INTRAVENOUS
     Route: 042
     Dates: start: 20060815, end: 20060926
  2. TAXOTERE [Suspect]
     Indication: OESOPHAGEAL ADENOCARCINOMA
     Dosage: 35 MG/M2, Q3W, INTRAVENOUS
     Route: 042
     Dates: start: 20060815, end: 20060926
  3. LORAZEPAM [Concomitant]
  4. CLARINEX [Concomitant]
  5. FERROUS SULFATE TAB [Concomitant]
  6. COMPAZINE [Concomitant]
  7. IMODIUM [Concomitant]
  8. OXYCONTIN [Concomitant]
  9. AZITHROMYCIN [Concomitant]

REACTIONS (13)
  - BACK PAIN [None]
  - BLOOD GLUCOSE INCREASED [None]
  - BLOOD LACTATE DEHYDROGENASE INCREASED [None]
  - CHEST PAIN [None]
  - COUGH [None]
  - DIARRHOEA [None]
  - DISEASE PROGRESSION [None]
  - DYSPNOEA EXERTIONAL [None]
  - HAEMATOCRIT DECREASED [None]
  - HAEMOGLOBIN DECREASED [None]
  - HYPOXIA [None]
  - PYREXIA [None]
  - WHITE BLOOD CELL COUNT INCREASED [None]
